FAERS Safety Report 19482675 (Version 4)
Quarter: 2021Q3

REPORT INFORMATION
  Report Type: Other
  Country: KR (occurrence: KR)
  Receive Date: 20210701
  Receipt Date: 20210924
  Transmission Date: 20211014
  Serious: Yes (Death, Hospitalization)
  Sender: FDA-Public Use
  Company Number: KR-ROCHE-2794550

PATIENT
  Age: 64 Year
  Sex: Male
  Weight: 58 kg

DRUGS (27)
  1. CARBOPLATIN. [Suspect]
     Active Substance: CARBOPLATIN
     Route: 042
     Dates: start: 20210325
  2. SMOFKABIVEN [Concomitant]
     Active Substance: AMINO ACIDS\DEXTROSE\ELECTROLYTES NOS\SOYBEAN OIL
     Route: 042
     Dates: start: 20210623
  3. SMOFKABIVEN PERIPHERAL [Concomitant]
     Route: 042
     Dates: start: 20210515
  4. XARELTO [Concomitant]
     Active Substance: RIVAROXABAN
     Route: 048
     Dates: start: 20210514, end: 20210622
  5. CARBOPLATIN. [Suspect]
     Active Substance: CARBOPLATIN
     Indication: SMALL CELL LUNG CANCER EXTENSIVE STAGE
     Route: 042
     Dates: start: 20210120
  6. CODEINE [Concomitant]
     Active Substance: CODEINE
     Indication: COUGH
     Route: 048
     Dates: start: 20210324, end: 20210706
  7. DENOGAN [Concomitant]
     Active Substance: PROPACETAMOL HYDROCHLORIDE
     Route: 042
     Dates: start: 20210518, end: 20210613
  8. NAXEN [Concomitant]
     Indication: PAIN
     Route: 048
     Dates: start: 20210514, end: 20210514
  9. CARBOPLATIN. [Suspect]
     Active Substance: CARBOPLATIN
     Route: 042
     Dates: start: 20210304
  10. DUPHALAC EASY [Concomitant]
     Active Substance: LACTULOSE
     Indication: CONSTIPATION
     Route: 048
     Dates: start: 20210123, end: 20210601
  11. RINO EBASTEL [Concomitant]
     Active Substance: EBASTINE\PSEUDOEPHEDRINE HYDROCHLORIDE
     Dates: start: 20210610, end: 20210706
  12. MYPOL (SOUTH KOREA) [Concomitant]
     Indication: PAIN
     Route: 048
     Dates: start: 20210107, end: 20210706
  13. CRAVIT [Concomitant]
     Active Substance: LEVOFLOXACIN
     Route: 042
     Dates: start: 20210521
  14. MEROPEN [Concomitant]
     Active Substance: MEROPENEM
     Route: 042
     Dates: start: 20210528, end: 20210617
  15. ERDOIN [Concomitant]
     Indication: PRODUCTIVE COUGH
     Route: 048
     Dates: start: 20210104, end: 20210706
  16. GASTER [Concomitant]
     Active Substance: FAMOTIDINE
     Indication: PROPHYLAXIS
     Route: 048
     Dates: start: 20210107, end: 20210706
  17. HOKUNALIN [Concomitant]
     Active Substance: TULOBUTEROL
     Indication: PRODUCTIVE COUGH
     Route: 062
     Dates: start: 20210419, end: 20210706
  18. ETOPOSIDE. [Suspect]
     Active Substance: ETOPOSIDE
     Indication: SMALL CELL LUNG CANCER EXTENSIVE STAGE
     Dosage: SUBSEQUENT DOSES ON 21/JAN/2021 AND 22/JAN/2021
     Route: 042
     Dates: start: 20210120
  19. ETOPOSIDE. [Suspect]
     Active Substance: ETOPOSIDE
     Dosage: SUBSEQUENT DOSES ON 11/FEB/2021, 12/FEB/2021, 04/MAR/2021, 05/MAR/2021, 06/MAR/2021, 25/MAR/2021, 26
     Route: 042
     Dates: start: 20210210
  20. APETROL (SOUTH KOREA) [Concomitant]
     Indication: DECREASED APPETITE
     Route: 048
     Dates: start: 20210112, end: 20210706
  21. LEBROCOL [Concomitant]
     Indication: CHRONIC OBSTRUCTIVE PULMONARY DISEASE
     Route: 048
     Dates: start: 20210114, end: 20210706
  22. XOTERNA BREEZHALER [Concomitant]
     Active Substance: GLYCOPYRRONIUM\INDACATEROL
     Indication: CHRONIC OBSTRUCTIVE PULMONARY DISEASE
     Dates: start: 20210107, end: 20210706
  23. NEXIUM [Concomitant]
     Active Substance: ESOMEPRAZOLE MAGNESIUM
     Route: 042
     Dates: start: 20210515
  24. ATEZOLIZUMAB. [Suspect]
     Active Substance: ATEZOLIZUMAB
     Indication: SMALL CELL LUNG CANCER EXTENSIVE STAGE
     Dosage: SUBSEQUENT DOSES ON 10/FEB/2021, 04/MAR/2021, 25/MAR/2021, 19/APR/2021 AND 10/MAY/2021
     Route: 041
     Dates: start: 20210120
  25. CARBOPLATIN. [Suspect]
     Active Substance: CARBOPLATIN
     Route: 042
     Dates: start: 20210210
  26. MACPERAN [Concomitant]
     Active Substance: METOCLOPRAMIDE HYDROCHLORIDE
     Indication: PROPHYLAXIS
     Route: 048
     Dates: start: 20210126, end: 20210706
  27. MAXIPIME [Concomitant]
     Active Substance: CEFEPIME HYDROCHLORIDE
     Route: 042
     Dates: start: 20210523, end: 20210528

REACTIONS (5)
  - Diarrhoea [Recovered/Resolved]
  - Pruritus [Recovering/Resolving]
  - Haemoglobin decreased [Recovering/Resolving]
  - Odynophagia [Recovering/Resolving]
  - Dysphagia [Recovering/Resolving]

NARRATIVE: CASE EVENT DATE: 20210317
